FAERS Safety Report 17284334 (Version 1)
Quarter: 2020Q1

REPORT INFORMATION
  Report Type: Spontaneous
  Country: US (occurrence: US)
  Receive Date: 20200117
  Receipt Date: 20200117
  Transmission Date: 20200409
  Serious: No
  Sender: FDA-Public Use
  Company Number: US-PFIZER INC-2020023554

PATIENT
  Age: 68 Year
  Sex: Female
  Weight: 68.27 kg

DRUGS (2)
  1. IBRANCE [Suspect]
     Active Substance: PALBOCICLIB
     Indication: BREAST CANCER METASTATIC
     Dosage: 125 MG, CYCLIC, [DAILY FOR 21 OUT OF 28 DAYS]
     Route: 048
     Dates: start: 20181205
  2. FASLODEX [Concomitant]
     Active Substance: FULVESTRANT
     Dosage: UNK

REACTIONS (2)
  - Tooth infection [Unknown]
  - White blood cell count decreased [Unknown]
